FAERS Safety Report 25567942 (Version 1)
Quarter: 2025Q3

REPORT INFORMATION
  Report Type: Spontaneous
  Country: US (occurrence: US)
  Receive Date: 20250716
  Receipt Date: 20250716
  Transmission Date: 20251021
  Serious: Yes (Other)
  Sender: MERCK SHARP & DOHME LLC
  Company Number: US-009507513-2308580

PATIENT
  Sex: Male

DRUGS (5)
  1. KEYTRUDA [Suspect]
     Active Substance: PEMBROLIZUMAB
     Indication: Renal cancer
     Route: 042
     Dates: start: 202503
  2. NORVASC [Concomitant]
     Active Substance: AMLODIPINE BESYLATE
  3. INLYTA [Concomitant]
     Active Substance: AXITINIB
  4. CARBOPLATIN [Concomitant]
     Active Substance: CARBOPLATIN
  5. LEVODOPA [Concomitant]
     Active Substance: LEVODOPA

REACTIONS (3)
  - Pemphigoid [Not Recovered/Not Resolved]
  - Blister [Unknown]
  - Hepatic cancer [Unknown]

NARRATIVE: CASE EVENT DATE: 20250101
